FAERS Safety Report 5387580-7 (Version None)
Quarter: 2007Q3

REPORT INFORMATION
  Report Type: 
  Country: None (occurrence: None)
  Receive Date: 20070711
  Receipt Date: 20070711
  Transmission Date: 20080115
  Serious: Yes (Hospitalization)
  Sender: FDA-Public Use
  Company Number: None

PATIENT
  Sex: Male
  Weight: 86.1834 kg

DRUGS (4)
  1. 5FU  UNKNOWN UNKNOWN [Suspect]
     Indication: CHEMOTHERAPY
     Dosage: 250ML OVER 5 DAYS IV
     Route: 042
     Dates: start: 20070602, end: 20070607
  2. 5FU  UNKNOWN UNKNOWN [Suspect]
     Indication: SQUAMOUS CELL CARCINOMA
     Dosage: 250ML OVER 5 DAYS IV
     Route: 042
     Dates: start: 20070602, end: 20070607
  3. 5FU  UNKNOWN UNKNOWN [Suspect]
     Indication: CHEMOTHERAPY
     Dosage: 250ML OVER 5 DAYS IV
     Route: 042
     Dates: start: 20070702, end: 20070703
  4. 5FU  UNKNOWN UNKNOWN [Suspect]
     Indication: SQUAMOUS CELL CARCINOMA
     Dosage: 250ML OVER 5 DAYS IV
     Route: 042
     Dates: start: 20070702, end: 20070703

REACTIONS (6)
  - CHILLS [None]
  - INFECTION [None]
  - ORAL MUCOSAL BLISTERING [None]
  - PYREXIA [None]
  - STOMATITIS [None]
  - WHITE BLOOD CELL COUNT INCREASED [None]
